FAERS Safety Report 11688030 (Version 2)
Quarter: 2015Q4

REPORT INFORMATION
  Report Type: Spontaneous
  Country: US (occurrence: US)
  Receive Date: 20151030
  Receipt Date: 20151218
  Transmission Date: 20160304
  Serious: Yes (Other)
  Sender: FDA-Public Use
  Company Number: PHHY2015US130612

PATIENT
  Age: 53 Year
  Sex: Female
  Weight: 79.82 kg

DRUGS (1)
  1. TYKERB [Suspect]
     Active Substance: LAPATINIB DITOSYLATE
     Indication: BREAST CANCER METASTATIC
     Dosage: 1250 MG, QD
     Route: 048
     Dates: start: 20140917, end: 20151209

REACTIONS (4)
  - Muscle spasms [Recovered/Resolved]
  - Malignant neoplasm progression [Unknown]
  - Muscle spasms [Not Recovered/Not Resolved]
  - Pain [Unknown]

NARRATIVE: CASE EVENT DATE: 201508
